FAERS Safety Report 8518955-2 (Version None)
Quarter: 2012Q3

REPORT INFORMATION
  Report Type: 
  Country: None (occurrence: None)
  Receive Date: 20120718
  Receipt Date: 20120625
  Transmission Date: 20120928
  Serious: Yes (Hospitalization)
  Sender: FDA-Public Use
  Company Number: JP-GLAXOSMITHKLINE-B0811366A

PATIENT
  Sex: Female
  Weight: 57 kg

DRUGS (5)
  1. LAMICTAL [Suspect]
     Dosage: 25MG PER DAY
     Route: 048
     Dates: start: 20111214, end: 20120207
  2. LAMICTAL [Suspect]
     Indication: TONIC CONVULSION
     Dosage: 25MG TWICE PER DAY
     Route: 048
     Dates: start: 20111012, end: 20111213
  3. DEPAKENE [Concomitant]
     Indication: TONIC CONVULSION
     Dosage: 600MG PER DAY
     Route: 048
  4. CLOBAZAM [Concomitant]
     Indication: TONIC CONVULSION
     Dosage: 10MG PER DAY
     Route: 048
     Dates: end: 20111012
  5. LAMICTAL [Suspect]
     Dosage: 50MG PER DAY
     Route: 048
     Dates: start: 20120208

REACTIONS (2)
  - MATERNAL EXPOSURE DURING PREGNANCY [None]
  - ABORTION [None]
